FAERS Safety Report 7981437-0 (Version None)
Quarter: 2011Q4

REPORT INFORMATION
  Report Type: 
  Country: None (occurrence: None)
  Receive Date: 20111215
  Receipt Date: 20111206
  Transmission Date: 20120403
  Serious: Yes (Hospitalization)
  Sender: FDA-Public Use
  Company Number: CA-UCBSA-047261

PATIENT
  Age: 26 Year
  Sex: Female
  Weight: 47 kg

DRUGS (6)
  1. FERROUS SULFATE TAB [Concomitant]
     Indication: ANAEMIA
     Route: 048
  2. CLONAZEPAM [Concomitant]
     Dosage: AT BED TIME
     Route: 048
  3. METHOTREXATE [Concomitant]
     Indication: CROHN'S DISEASE
     Route: 048
  4. PANTOPRAZOLE SODIUM [Concomitant]
     Route: 048
  5. CIMZIA [Suspect]
     Indication: CROHN'S DISEASE
     Route: 058
     Dates: start: 20100217, end: 20110101
  6. BISOPROLOL FUMARATE [Concomitant]
     Route: 048

REACTIONS (3)
  - WEIGHT DECREASED [None]
  - INFLUENZA LIKE ILLNESS [None]
  - ORAL HERPES [None]
